FAERS Safety Report 20038283 (Version 3)
Quarter: 2021Q4

REPORT INFORMATION
  Report Type: Report from Study
  Country: CA (occurrence: CA)
  Receive Date: 20211105
  Receipt Date: 20211228
  Transmission Date: 20220303
  Serious: Yes (Other)
  Sender: FDA-Public Use
  Company Number: CA-SAMSUNG BIOEPIS-SB-2021-25868

PATIENT
  Age: 42 Year
  Sex: Female
  Weight: 73 kg

DRUGS (9)
  1. RENFLEXIS [Suspect]
     Active Substance: INFLIXIMAB-ABDA
     Indication: Colitis ulcerative
     Dosage: UNKNOWN (LOADING), WEEK 0
     Route: 065
     Dates: start: 20210912
  2. RENFLEXIS [Suspect]
     Active Substance: INFLIXIMAB-ABDA
     Dosage: UNKNOWN (LOADING), WEEK 2
     Route: 065
     Dates: start: 20210929
  3. RENFLEXIS [Suspect]
     Active Substance: INFLIXIMAB-ABDA
     Dosage: UNKNOWN (LOADING), WEEK 6 (28-OCT (YEAR UNSPECIFIED))
     Route: 065
  4. RENFLEXIS [Suspect]
     Active Substance: INFLIXIMAB-ABDA
     Route: 042
  5. RENFLEXIS [Suspect]
     Active Substance: INFLIXIMAB-ABDA
     Route: 042
  6. OMEPRAZOLE [Concomitant]
     Active Substance: OMEPRAZOLE
     Indication: Product used for unknown indication
     Route: 065
  7. CYCLOBENZAPRINE [Concomitant]
     Active Substance: CYCLOBENZAPRINE
     Indication: Product used for unknown indication
     Dosage: PRN
     Route: 065
  8. ZOPICLONE [Concomitant]
     Active Substance: ZOPICLONE
     Indication: Product used for unknown indication
     Route: 065
  9. CITALOPRAM [Concomitant]
     Active Substance: CITALOPRAM HYDROBROMIDE
     Indication: Product used for unknown indication
     Route: 065

REACTIONS (1)
  - Respiratory rate increased [Unknown]

NARRATIVE: CASE EVENT DATE: 20211028
